FAERS Safety Report 6558699-X (Version None)
Quarter: 2010Q1

REPORT INFORMATION
  Report Type: 
  Country: None (occurrence: None)
  Receive Date: 20100129
  Receipt Date: 20100119
  Transmission Date: 20100710
  Serious: Yes (Other)
  Sender: FDA-Public Use
  Company Number: US-PFIZER INC-2010011681

PATIENT
  Sex: Female

DRUGS (4)
  1. NEURONTIN [Suspect]
     Dosage: 300 MG, 1X/DAY
     Route: 050
     Dates: start: 20080501
  2. OMEPRAZOLE [Concomitant]
     Dosage: UNK
     Route: 050
  3. VITAMIN D [Concomitant]
     Dosage: UNK
     Route: 050
  4. FISH OIL [Concomitant]
     Dosage: UNK
     Route: 050

REACTIONS (1)
  - ABORTION SPONTANEOUS [None]
